FAERS Safety Report 19221433 (Version 2)
Quarter: 2021Q3

REPORT INFORMATION
  Report Type: Spontaneous
  Country: US (occurrence: US)
  Receive Date: 20210506
  Receipt Date: 20210729
  Transmission Date: 20211014
  Serious: No
  Sender: FDA-Public Use
  Company Number: US-BAYER-2021-136036

PATIENT
  Age: 31 Year
  Sex: Female
  Weight: 64.9 kg

DRUGS (1)
  1. MIRENA [Suspect]
     Active Substance: LEVONORGESTREL
     Indication: CONTRACEPTION
     Dosage: 20 ?G PER DAY CONTINUOUSLY
     Route: 015
     Dates: start: 201901, end: 20210423

REACTIONS (5)
  - Medical device pain [None]
  - Vaginal odour [None]
  - Pruritus [None]
  - Vaginal discharge [None]
  - Device expulsion [Recovered/Resolved]

NARRATIVE: CASE EVENT DATE: 202101
